FAERS Safety Report 24746039 (Version 1)
Quarter: 2024Q4

REPORT INFORMATION
  Report Type: Spontaneous
  Country: FR (occurrence: FR)
  Receive Date: 20241218
  Receipt Date: 20241218
  Transmission Date: 20250115
  Serious: Yes (Hospitalization, Other)
  Sender: AUROBINDO
  Company Number: FR-AFSSAPS-NY2024001376

PATIENT
  Age: 15 Year
  Sex: Male
  Weight: 95 kg

DRUGS (9)
  1. AZITHROMYCIN [Suspect]
     Active Substance: AZITHROMYCIN
     Indication: Bronchitis
     Dosage: 500 MILLIGRAM PER GRAM, ONCE A DAY
     Route: 048
     Dates: start: 20241009, end: 20241014
  2. LEVOCETIRIZINE [Suspect]
     Active Substance: LEVOCETIRIZINE
     Indication: Hypersensitivity
     Dosage: 5 MILLIGRAM, ONCE A DAY
     Route: 048
     Dates: start: 20240813, end: 20241019
  3. FLUTICASONE FUROATE\VILANTEROL TRIFENATATE [Concomitant]
     Active Substance: FLUTICASONE FUROATE\VILANTEROL TRIFENATATE
     Indication: Asthma
     Dosage: 1 DOSAGE FORM, ONCE A DAY
     Dates: start: 20240712
  4. DUPIXENT [Concomitant]
     Active Substance: DUPILUMAB
     Indication: Eczema
     Dosage: 300 MILLIGRAM
     Route: 058
     Dates: start: 202408
  5. DUPIXENT [Concomitant]
     Active Substance: DUPILUMAB
     Indication: Asthma
     Dosage: 300 MILLIGRAM, UNK (300 MG TOUTES LES DEUX SEMAINES)
     Route: 058
     Dates: start: 20241007, end: 20241007
  6. DUPIXENT [Concomitant]
     Active Substance: DUPILUMAB
     Dosage: 300 MILLIGRAM, UNK (300 MG TOUTES LES DEUX SEMAINES)
     Route: 058
     Dates: start: 20241021, end: 20241021
  7. DUPIXENT [Concomitant]
     Active Substance: DUPILUMAB
     Dosage: 300 MILLIGRAM, UNK (300 MG TOUTES LES DEUX SEMAINES)
     Route: 058
     Dates: start: 20241104, end: 20241104
  8. DUPIXENT [Concomitant]
     Active Substance: DUPILUMAB
     Dosage: 300 MILLIGRAM, UNK (300 MG TOUTES LES DEUX SEMAINES)
     Route: 058
     Dates: start: 20241118
  9. ALBUTEROL SULFATE [Concomitant]
     Active Substance: ALBUTEROL SULFATE
     Indication: Asthma
     Dosage: 2 DOSAGE FORM (2 BOUFF?ES  EN CAS DE DIFFICULT? RESPIRATOIRE OU TOUX)
     Dates: start: 20221215

REACTIONS (1)
  - Generalised tonic-clonic seizure [Recovered/Resolved]

NARRATIVE: CASE EVENT DATE: 20241019
